FAERS Safety Report 6808310-5 (Version None)
Quarter: 2010Q2

REPORT INFORMATION
  Report Type: 
  Country: None (occurrence: None)
  Receive Date: 20100629
  Receipt Date: 20090616
  Transmission Date: 20101027
  Serious: No
  Sender: FDA-Public Use
  Company Number: US-PFIZER INC-2009202672

PATIENT
  Sex: Male
  Weight: 86 kg

DRUGS (7)
  1. VIAGRA [Suspect]
     Indication: ERECTILE DYSFUNCTION
     Dosage: 50 MG, UNK
     Dates: start: 20050211
  2. PRILOSEC [Concomitant]
     Indication: GASTROOESOPHAGEAL REFLUX DISEASE
     Dosage: UNK
  3. LISINOPRIL [Concomitant]
     Dosage: 40MG/DAY
  4. HYDROCHLOROTHIAZIDE [Concomitant]
     Dosage: 12.5MG/DAY
  5. ALLOPURINOL [Concomitant]
     Dosage: 300MG/DAY
  6. ACETYLSALICYLIC ACID [Concomitant]
     Dosage: 650MG/DAY
     Route: 048
  7. ACYCLOVIR [Concomitant]
     Dosage: 400MG AS NEEDED

REACTIONS (4)
  - DRUG INEFFECTIVE [None]
  - FLUSHING [None]
  - NAUSEA [None]
  - TREMOR [None]
